FAERS Safety Report 17317280 (Version 1)
Quarter: 2020Q1

REPORT INFORMATION
  Report Type: Spontaneous
  Country: US (occurrence: US)
  Receive Date: 20200124
  Receipt Date: 20200124
  Transmission Date: 20200409
  Serious: No
  Sender: FDA-Public Use
  Company Number: US-OTSUKA-2019_026101

PATIENT
  Sex: Male
  Weight: 79.36 kg

DRUGS (4)
  1. LAMOTRIGINE. [Suspect]
     Active Substance: LAMOTRIGINE
     Dosage: 0.5 MG, UNK
     Route: 065
     Dates: start: 201906
  2. REXULTI [Suspect]
     Active Substance: BREXPIPRAZOLE
     Indication: BIPOLAR DISORDER
     Dosage: 0.5 MG, AS NEEDED
     Route: 065
  3. LAMOTRIGINE. [Suspect]
     Active Substance: LAMOTRIGINE
     Indication: PRODUCT USED FOR UNKNOWN INDICATION
     Dosage: 0.5 MG, UNK
     Route: 065
     Dates: start: 201806
  4. LAMOTRIGINE. [Suspect]
     Active Substance: LAMOTRIGINE
     Dosage: 0.5 MG, UNK
     Route: 065
     Dates: start: 201810

REACTIONS (3)
  - Inappropriate schedule of product administration [Unknown]
  - Drug effective for unapproved indication [Unknown]
  - Dyspnoea [Recovered/Resolved]
